FAERS Safety Report 26030619 (Version 1)
Quarter: 2025Q4

REPORT INFORMATION
  Report Type: Spontaneous
  Country: CN (occurrence: CN)
  Receive Date: 20251112
  Receipt Date: 20251112
  Transmission Date: 20260117
  Serious: Yes (Other)
  Sender: AMGEN
  Company Number: CN-AMGEN-CHNSP2025221365

PATIENT

DRUGS (9)
  1. CARFILZOMIB [Suspect]
     Active Substance: CARFILZOMIB
     Indication: Plasma cell myeloma
     Dosage: 20 MILLIGRAM/SQ. METER (D1-2 IN CYCLE1)
     Route: 040
  2. CARFILZOMIB [Suspect]
     Active Substance: CARFILZOMIB
     Indication: Off label use
     Dosage: 27 MILLIGRAM/SQ. METER (D8-9; THEREAFTER 27 MG/M 2 BY INTRAVENOUS INJECTION ON D 1, 2, 8, 9 OF EACH
     Route: 040
  3. CISPLATIN [Suspect]
     Active Substance: CISPLATIN
     Indication: Plasma cell myeloma
     Dosage: 10 MILLIGRAM/SQ. METER (D1-4)
     Route: 040
  4. EPIRUBICIN [Suspect]
     Active Substance: EPIRUBICIN
     Indication: Plasma cell myeloma
     Dosage: 10 MILLIGRAM/SQ. METER (D1-4)
     Route: 040
  5. CYCLOPHOSPHAMIDE [Suspect]
     Active Substance: CYCLOPHOSPHAMIDE
     Indication: Plasma cell myeloma
     Dosage: 400 MILLIGRAM (D1-4)
     Route: 040
  6. ETOPOSIDE [Suspect]
     Active Substance: ETOPOSIDE
     Indication: Plasma cell myeloma
     Dosage: 40 MILLIGRAM/SQ. METER
     Route: 040
  7. DARATUMUMAB [Concomitant]
     Active Substance: DARATUMUMAB
     Indication: Plasma cell myeloma
     Dosage: 16 MILLIGRAM/KILOGRAM (ON D1, 8, 15)
     Route: 040
  8. LENALIDOMIDE [Concomitant]
     Active Substance: LENALIDOMIDE
     Indication: Plasma cell myeloma
     Dosage: 25 MILLIGRAM (D1-7,14)
     Route: 048
  9. DEXAMETHASONE [Concomitant]
     Active Substance: DEXAMETHASONE
     Indication: Plasma cell myeloma
     Dosage: 40 MILLIGRAM (D1, 8, 15, 22) (20 MG BY INTRAVENOUS INJECTION OR ORALLY, D1, 8, 15, 22 EACH CYCLE WAS
     Route: 040

REACTIONS (15)
  - Neutrophil count decreased [Recovering/Resolving]
  - Anaemia [Recovering/Resolving]
  - Platelet count decreased [Recovering/Resolving]
  - Infection [Recovering/Resolving]
  - Pneumonia [Recovering/Resolving]
  - Liver injury [Recovering/Resolving]
  - Neuropathy peripheral [Recovering/Resolving]
  - Blood stem cell transplant failure [Unknown]
  - Plasma cell myeloma [Unknown]
  - Atrial thrombosis [Recovering/Resolving]
  - Hepatic function abnormal [Recovering/Resolving]
  - Adverse reaction [Recovering/Resolving]
  - Venous thrombosis [Recovering/Resolving]
  - Therapy partial responder [Unknown]
  - Off label use [Unknown]
